FAERS Safety Report 6706519-2 (Version None)
Quarter: 2010Q2

REPORT INFORMATION
  Report Type: 
  Country: None (occurrence: None)
  Receive Date: 20100503
  Receipt Date: 20100428
  Transmission Date: 20101027
  Serious: Yes (Life-Threatening)
  Sender: FDA-Public Use
  Company Number: PHHY2010BR26977

PATIENT
  Sex: Male
  Weight: 54 kg

DRUGS (5)
  1. COMTAN [Suspect]
     Indication: PARKINSON'S DISEASE
     Dosage: 1 TABLET FIVE TIMES DAILY: 6H00, 10H00, 14H00, 20H00 AND 22H00
     Route: 048
  2. PROLOPA [Concomitant]
     Indication: PARKINSON'S DISEASE
     Dosage: 1 TABLET FIVE TIMES DAILY: 6H00, 10H00, 14H00, 20H00 AND 22H00
     Route: 048
  3. TRAZODONE HCL [Concomitant]
     Indication: PARKINSON'S DISEASE
     Dosage: UNK
     Route: 048
  4. SIMVASTATIN [Concomitant]
     Indication: BLOOD CHOLESTEROL
     Dosage: 1 TABLET, BID
     Route: 048
  5. CAPTOPRIL [Concomitant]
     Indication: BLOOD PRESSURE INCREASED
     Dosage: 1 TABLET BID: MORNING AND NIGHT
     Route: 048

REACTIONS (5)
  - FATIGUE [None]
  - FEAR OF DEATH [None]
  - PAIN [None]
  - THERAPY CESSATION [None]
  - TREMOR [None]
